FAERS Safety Report 7465905-6 (Version None)
Quarter: 2011Q2

REPORT INFORMATION
  Report Type: 
  Country: None (occurrence: None)
  Receive Date: 20110509
  Receipt Date: 20100428
  Transmission Date: 20111010
  Serious: No
  Sender: FDA-Public Use
  Company Number: US-ALEXION-A201000489

PATIENT
  Sex: Male

DRUGS (3)
  1. ATIVAN [Concomitant]
     Dosage: UNK
     Route: 048
  2. SOLIRIS [Suspect]
     Indication: PAROXYSMAL NOCTURNAL HAEMOGLOBINURIA
     Dosage: 600 MG, QWX4
     Route: 042
     Dates: start: 20071112, end: 20071203
  3. SOLIRIS [Suspect]
     Dosage: 900 MG, Q2W
     Route: 042
     Dates: start: 20071212

REACTIONS (10)
  - JOINT STIFFNESS [None]
  - FATIGUE [None]
  - BLOOD PROLACTIN ABNORMAL [None]
  - HYPOTHALAMO-PITUITARY DISORDER [None]
  - BLOOD IRON INCREASED [None]
  - CORNEAL SCAR [None]
  - CONDITION AGGRAVATED [None]
  - SENSORY DISTURBANCE [None]
  - LOSS OF LIBIDO [None]
  - ARTHRALGIA [None]
